FAERS Safety Report 5463133-7 (Version None)
Quarter: 2007Q3

REPORT INFORMATION
  Report Type: 
  Country: None (occurrence: None)
  Receive Date: 20070918
  Receipt Date: 20070918
  Transmission Date: 20080115
  Serious: Yes (Life-Threatening, Hospitalization, Other)
  Sender: FDA-Public Use
  Company Number: None

PATIENT
  Age: 46 Year
  Sex: Female
  Weight: 68.0396 kg

DRUGS (1)
  1. ORTHO EVRA [Suspect]
     Indication: CONTRACEPTION
     Dosage: ONE PATCH PER WEEK WEEKLY
     Dates: start: 20050401, end: 20050815

REACTIONS (9)
  - APPLICATION SITE ERYTHEMA [None]
  - APPLICATION SITE PAIN [None]
  - BRAIN OEDEMA [None]
  - BREAST PAIN [None]
  - CEREBRAL THROMBOSIS [None]
  - DIZZINESS [None]
  - HEADACHE [None]
  - MENINGITIS VIRAL [None]
  - PAPILLOEDEMA [None]
